FAERS Safety Report 5788250-3 (Version None)
Quarter: 2008Q2

REPORT INFORMATION
  Report Type: 
  Country: None (occurrence: None)
  Receive Date: 20080623
  Receipt Date: 20080611
  Transmission Date: 20081010
  Serious: Yes (Hospitalization)
  Sender: FDA-Public Use
  Company Number: 235587J08USA

PATIENT
  Age: 59 Year
  Sex: Female

DRUGS (6)
  1. REBIF [Suspect]
     Indication: MULTIPLE SCLEROSIS
     Dosage: 44 MCG, 3 IN 1 WEEKS, SUBCUTANEOUS
     Route: 058
     Dates: start: 20041210
  2. NEURONTIN [Concomitant]
  3. DIOVAN [Concomitant]
  4. METOPROLOL (METOPROLOL /00376901/) [Concomitant]
  5. HYDROCHLOROTHIAZIDE [Concomitant]
  6. ANTI CHOLESTEROL MEDICATION        (CHOLESTEROL- AND TRIGLYCERIDE REDU [Concomitant]

REACTIONS (4)
  - BURNING SENSATION [None]
  - FALL [None]
  - ROTATOR CUFF SYNDROME [None]
  - UPPER LIMB FRACTURE [None]
